FAERS Safety Report 21866478 (Version 7)
Quarter: 2023Q4

REPORT INFORMATION
  Report Type: Report from Study
  Country: US (occurrence: US)
  Receive Date: 20230116
  Receipt Date: 20231121
  Transmission Date: 20240109
  Serious: Yes (Hospitalization, Other)
  Sender: FDA-Public Use
  Company Number: US-ABBVIE-4269618

PATIENT
  Age: 51 Year
  Sex: Male

DRUGS (4)
  1. RINVOQ [Suspect]
     Active Substance: UPADACITINIB
     Indication: Colitis ulcerative
     Dosage: FORM STRENGTH: 15 MILLIGRAM
     Route: 048
  2. RINVOQ [Suspect]
     Active Substance: UPADACITINIB
     Indication: Colitis ulcerative
     Dosage: FORM STRENGTH: 15 MILLIGRAM
     Route: 048
  3. RINVOQ [Suspect]
     Active Substance: UPADACITINIB
     Indication: Colitis ulcerative
     Dosage: FORM STRENGTH: 15 MILLIGRAM
     Route: 048
  4. RINVOQ [Suspect]
     Active Substance: UPADACITINIB
     Indication: Colitis ulcerative
     Route: 048

REACTIONS (10)
  - Staphylococcal infection [Unknown]
  - Medical device site pain [Unknown]
  - Urinary tract infection [Recovering/Resolving]
  - Vomiting [Recovered/Resolved]
  - Prosthesis implantation [Recovering/Resolving]
  - Hypersensitivity [Recovering/Resolving]
  - Post procedural infection [Recovering/Resolving]
  - Pain in extremity [Unknown]
  - Post procedural haemorrhage [Unknown]
  - Chills [Unknown]

NARRATIVE: CASE EVENT DATE: 20221101
